FAERS Safety Report 14154525 (Version 11)
Quarter: 2018Q4

REPORT INFORMATION
  Report Type: Spontaneous
  Country: US (occurrence: US)
  Receive Date: 20171102
  Receipt Date: 20181221
  Transmission Date: 20190204
  Serious: Yes (Other)
  Sender: FDA-Public Use
  Company Number: US-ACTELION-A-NJ2017-161622

PATIENT
  Age: 70 Year
  Sex: Female

DRUGS (2)
  1. BACTRIM DS [Suspect]
     Active Substance: SULFAMETHOXAZOLE\TRIMETHOPRIM
     Indication: PRODUCT USED FOR UNKNOWN INDICATION
     Dosage: UNK
     Route: 065
     Dates: end: 201811
  2. OPSUMIT [Suspect]
     Active Substance: MACITENTAN
     Indication: PULMONARY ARTERIAL HYPERTENSION
     Dosage: 10 MG, QD
     Route: 048
     Dates: start: 20170818, end: 20181023

REACTIONS (15)
  - Cardiac failure congestive [Recovered/Resolved]
  - Weight decreased [Unknown]
  - Pulmonary oedema [Recovered/Resolved]
  - Malaise [Recovered/Resolved]
  - Left ventricular failure [Unknown]
  - Treatment noncompliance [Unknown]
  - Condition aggravated [Unknown]
  - Product dose omission [Unknown]
  - Fatigue [Unknown]
  - Dyspnoea [Recovered/Resolved]
  - Cystitis [Unknown]
  - Dysgeusia [Unknown]
  - Nausea [Unknown]
  - Therapy non-responder [Unknown]
  - Fluid retention [Recovered/Resolved]

NARRATIVE: CASE EVENT DATE: 201710
